FAERS Safety Report 9186469 (Version 1)
Quarter: 2013Q1

REPORT INFORMATION
  Report Type: Spontaneous
  Country: US (occurrence: None)
  Receive Date: 20120702
  Receipt Date: 20120702
  Transmission Date: 20140127
  Serious: Yes (Other)
  Sender: FDA-Public Use
  Company Number: JPI-P-004431

PATIENT
  Sex: Male

DRUGS (1)
  1. LUVOX [Suspect]
     Route: 048
     Dates: start: 200808, end: 200808

REACTIONS (3)
  - Suicidal ideation [None]
  - Agitation [None]
  - Fatigue [None]
